FAERS Safety Report 4464528-0 (Version None)
Quarter: 2004Q3

REPORT INFORMATION
  Report Type: 
  Country: None (occurrence: None)
  Receive Date: 20040929
  Receipt Date: 20040921
  Transmission Date: 20050211
  Serious: Yes (Other)
  Sender: FDA-Public Use
  Company Number: HQWYE176316JUL04

PATIENT
  Sex: Female

DRUGS (1)
  1. ADVIL [Suspect]
     Indication: PATENT DUCTUS ARTERIOSUS
     Dosage: 10 MG/KG ONCE; 5 MG/KG TWICE
     Route: 045

REACTIONS (2)
  - INTESTINAL PERFORATION [None]
  - NEONATAL DISORDER [None]
